FAERS Safety Report 16424173 (Version 1)
Quarter: 2019Q2

REPORT INFORMATION
  Report Type: Spontaneous
  Country: IT (occurrence: IT)
  Receive Date: 20190613
  Receipt Date: 20190613
  Transmission Date: 20190711
  Serious: Yes (Hospitalization)
  Sender: FDA-Public Use
  Company Number: IT-SAMSUNG BIOEPIS-SB-2019-14127

PATIENT
  Age: 81 Year
  Sex: Male

DRUGS (1)
  1. FLIXABI [Suspect]
     Active Substance: INFLIXIMAB
     Indication: PSORIATIC ARTHROPATHY
     Route: 042
     Dates: start: 20180911

REACTIONS (6)
  - Rash [Recovering/Resolving]
  - Renal failure [Recovering/Resolving]
  - Vasculitis [Recovering/Resolving]
  - Henoch-Schonlein purpura [Recovering/Resolving]
  - Local reaction [Recovering/Resolving]
  - Purpura [Recovering/Resolving]

NARRATIVE: CASE EVENT DATE: 20180912
